FAERS Safety Report 15261978 (Version 1)
Quarter: 2018Q3

REPORT INFORMATION
  Report Type: Spontaneous
  Country: CH (occurrence: CH)
  Receive Date: 20180809
  Receipt Date: 20180809
  Transmission Date: 20181010
  Serious: Yes (Other)
  Sender: FDA-Public Use
  Company Number: CH-BAYER-2018-143776

PATIENT
  Age: 73 Year
  Sex: Male

DRUGS (17)
  1. ATORVASTATIN [Suspect]
     Active Substance: ATORVASTATIN
     Dosage: 40 MG, UNK
     Route: 048
     Dates: start: 20180511, end: 20180515
  2. DAFALGAN [Concomitant]
     Active Substance: ACETAMINOPHEN
  3. MORPHIN HCL [Concomitant]
     Active Substance: MORPHINE HYDROCHLORIDE
  4. COLECALCIFEROL [Concomitant]
     Active Substance: CHOLECALCIFEROL
  5. NEXIUM [Suspect]
     Active Substance: ESOMEPRAZOLE MAGNESIUM
     Dosage: 20 MG, QD
     Route: 048
  6. TORASEMIDE [Concomitant]
     Active Substance: TORSEMIDE
  7. ATORVASTATIN [Suspect]
     Active Substance: ATORVASTATIN
     Dosage: 80 MG, QD
     Route: 048
     Dates: start: 20180424, end: 20180511
  8. LAXOBERON [Concomitant]
     Active Substance: SODIUM PICOSULFATE
  9. SORBITOL [SORBITOL] [Concomitant]
     Active Substance: SORBITOL
  10. ASPIRIN CARDIO 100 MG [Suspect]
     Active Substance: ASPIRIN
     Dosage: 100 MG, QD
     Route: 048
     Dates: start: 20180424
  11. HALDOL [Suspect]
     Active Substance: HALOPERIDOL
     Dosage: .5 MG, UNK
     Route: 048
  12. PREDNISONE. [Concomitant]
     Active Substance: PREDNISONE
  13. ANXIOLIT [Concomitant]
     Active Substance: OXAZEPAM
  14. ENEMA [PHOSPHORIC ACID SODIUM] [Concomitant]
  15. CLEXANE [Suspect]
     Active Substance: ENOXAPARIN SODIUM
     Dosage: 40 MG, QD
     Route: 058
  16. HALDOL [Suspect]
     Active Substance: HALOPERIDOL
     Dosage: 0.25 MG, TID, SOLUTION
     Route: 048
  17. HALDOL [Suspect]
     Active Substance: HALOPERIDOL
     Dosage: .5 MG, UNK
     Route: 058

REACTIONS (1)
  - Liver function test increased [Recovering/Resolving]

NARRATIVE: CASE EVENT DATE: 20180616
